FAERS Safety Report 5004979-9 (Version None)
Quarter: 2006Q1

REPORT INFORMATION
  Report Type: 
  Country: None (occurrence: None)
  Receive Date: 20060321
  Receipt Date: 20051128
  Transmission Date: 20060701
  Serious: No
  Sender: FDA-Public Use
  Company Number: YPA20050573

PATIENT
  Age: 70 Year
  Sex: Female

DRUGS (4)
  1. VESICARE [Suspect]
     Indication: HYPERTONIC BLADDER
     Dates: start: 20050101
  2. PREDNISONE TAB [Concomitant]
  3. STOOL SOFTENER (DOCUSATE SODIUM) [Concomitant]
  4. MILK OF MAGNESIA TAB [Concomitant]

REACTIONS (3)
  - CONSTIPATION [None]
  - FOOD INTERACTION [None]
  - POLLAKIURIA [None]
